FAERS Safety Report 10711231 (Version 1)
Quarter: 2015Q1

REPORT INFORMATION
  Report Type: Spontaneous
  Country: AT (occurrence: AT)
  Receive Date: 20150114
  Receipt Date: 20150114
  Transmission Date: 20150721
  Serious: Yes (Other)
  Sender: FDA-Public Use
  Company Number: AT-PFIZER INC-2015005243

PATIENT
  Age: 63 Year
  Sex: Female

DRUGS (3)
  1. CYCLOPHOSPHAMIDE. [Concomitant]
     Active Substance: CYCLOPHOSPHAMIDE
     Indication: INVASIVE LOBULAR BREAST CARCINOMA
     Dosage: 932 MG, CYCLIC (FIRST CYCLE)
     Route: 042
  2. 5-FLUOROURACIL [Concomitant]
     Active Substance: FLUOROURACIL
     Indication: INVASIVE LOBULAR BREAST CARCINOMA
     Route: 042
  3. EPIRUBICIN HCL [Suspect]
     Active Substance: EPIRUBICIN HYDROCHLORIDE
     Indication: INVASIVE LOBULAR BREAST CARCINOMA
     Dosage: 140 MG, CYCLIC (70 ML IN 250 ML OF 0.9% PHYSIOLOGICAL NACL SOLUTION)
     Route: 042

REACTIONS (4)
  - Oedema [Recovered/Resolved]
  - Burning sensation [Recovered/Resolved]
  - Extravasation [Recovered/Resolved]
  - Skin discolouration [Recovered/Resolved]
